FAERS Safety Report 4674412-5 (Version None)
Quarter: 2005Q2

REPORT INFORMATION
  Report Type: 
  Country: None (occurrence: None)
  Receive Date: 20050524
  Receipt Date: 20050505
  Transmission Date: 20051028
  Serious: Yes (Hospitalization, Other)
  Sender: FDA-Public Use
  Company Number: USA040773177

PATIENT
  Age: 65 Year
  Sex: Female
  Weight: 54 kg

DRUGS (2)
  1. HUMULIN N [Suspect]
     Indication: DIABETES MELLITUS
     Dates: start: 19830101
  2. HUMULIN R [Suspect]
     Indication: DIABETES MELLITUS
     Dates: start: 19830101

REACTIONS (17)
  - BLOOD GLUCOSE INCREASED [None]
  - CARDIAC OPERATION [None]
  - CLOSTRIDIUM COLITIS [None]
  - CORONARY ARTERY SURGERY [None]
  - DIABETIC NEUROPATHY [None]
  - FALL [None]
  - FOOT FRACTURE [None]
  - GASTROINTESTINAL INFECTION [None]
  - INSULIN RESISTANCE [None]
  - MYOCARDIAL INFARCTION [None]
  - NAUSEA [None]
  - OSTEOMYELITIS [None]
  - PHARMACEUTICAL PRODUCT COMPLAINT [None]
  - QUADRUPLE VESSEL BYPASS GRAFT [None]
  - SENSORY DISTURBANCE [None]
  - UPPER LIMB FRACTURE [None]
  - WRIST FRACTURE [None]
